FAERS Safety Report 4668850-4 (Version None)
Quarter: 2005Q2

REPORT INFORMATION
  Report Type: 
  Country: None (occurrence: None)
  Receive Date: 20050523
  Receipt Date: 20040913
  Transmission Date: 20051028
  Serious: Yes (Other)
  Sender: FDA-Public Use
  Company Number: DE-MERCK-0409DEU00089

PATIENT
  Age: 44 Year
  Sex: Male
  Weight: 81 kg

DRUGS (5)
  1. VIOXX [Suspect]
     Indication: ARTHRITIS REACTIVE
     Route: 048
     Dates: start: 20040818, end: 20040821
  2. CYCLOSPORINE [Concomitant]
     Route: 065
  3. [THERAPY UNSPECIFIED] [Concomitant]
     Route: 065
  4. DEFIBROTIDE [Concomitant]
     Indication: VENOUS OCCLUSION
     Route: 042
     Dates: start: 20040731, end: 20040821
  5. ANTIMICROBIAL (UNSPECIFIED) [Concomitant]
     Indication: PNEUMONIA
     Route: 065
     Dates: start: 20040101, end: 20040821

REACTIONS (7)
  - CYTOMEGALOVIRUS INFECTION [None]
  - GASTRITIS EROSIVE [None]
  - GRAFT VERSUS HOST DISEASE [None]
  - HYPERTENSION [None]
  - RENAL FAILURE [None]
  - RENAL TUBULAR NECROSIS [None]
  - TACHYARRHYTHMIA [None]
